FAERS Safety Report 8726660 (Version 2)
Quarter: 2012Q4

REPORT INFORMATION
  Report Type: 
  Country: JP (occurrence: JP)
  Receive Date: 20120816
  Receipt Date: 20120913
  Transmission Date: 20130627
  Serious: Yes (Hospitalization)
  Sender: FDA-Public Use
  Company Number: JP-TEVA-352486ISR

PATIENT
  Age: 3 Month
  Sex: Male

DRUGS (6)
  1. CISPLATIN [Suspect]
     Indication: NEUROBLASTOMA
     Dosage: 18 mg/m 2 for 5 days on days 1 to 5
     Route: 065
  2. VINCRISTINE [Suspect]
     Indication: NEUROBLASTOMA
     Dosage: 1.5 mg/m2 for 1 day on day 1
     Route: 065
  3. CYCLOPHOSPHAMIDE [Suspect]
     Indication: NEUROBLASTOMA
     Dosage: 1200 mg/m2 for 1 day on day 1
     Route: 065
  4. PIRARUBICIN [Suspect]
     Indication: NEUROBLASTOMA
     Dosage: 25 mg/m2 for 1 day on Day 1
  5. ALLOPURINOL [Concomitant]
     Indication: PROPHYLAXIS
     Dosage: 300 mg/m2/day
     Route: 065
  6. DALTEPARIN SODIUM [Concomitant]
     Indication: PROPHYLAXIS
     Route: 041

REACTIONS (1)
  - Histiocytosis haematophagic [Recovered/Resolved]
